FAERS Safety Report 19030981 (Version 1)
Quarter: 2021Q1

REPORT INFORMATION
  Report Type: Spontaneous
  Country: US (occurrence: US)
  Receive Date: 20210319
  Receipt Date: 20210319
  Transmission Date: 20210420
  Serious: Yes (Other)
  Sender: FDA-Public Use
  Company Number: US-GLAXOSMITHKLINE-US2021GSK051710

PATIENT
  Sex: Female

DRUGS (6)
  1. RANITIDINE CAPSULE [Suspect]
     Active Substance: RANITIDINE
     Indication: METABOLIC SURGERY
     Dosage: 150 MG, QD
     Route: 065
     Dates: start: 200402, end: 201401
  2. RANITIDINE. [Suspect]
     Active Substance: RANITIDINE
     Indication: METABOLIC SURGERY
     Dosage: 150 MG, QD
     Route: 065
     Dates: start: 200402, end: 201401
  3. ZANTAC [Suspect]
     Active Substance: RANITIDINE HYDROCHLORIDE
     Indication: METABOLIC SURGERY
     Dosage: 150 MG, QD
     Route: 065
     Dates: start: 200402, end: 201407
  4. ZANTAC [Suspect]
     Active Substance: RANITIDINE HYDROCHLORIDE
     Indication: METABOLIC SURGERY
     Dosage: 150 MG, QD
     Route: 065
     Dates: start: 200402, end: 201407
  5. ZANTAC [Suspect]
     Active Substance: RANITIDINE HYDROCHLORIDE
     Indication: METABOLIC SURGERY
     Dosage: 150 MG, QD
     Route: 065
     Dates: start: 200402, end: 201407
  6. RANITIDINE HYDROCHLORIDE. [Suspect]
     Active Substance: RANITIDINE HYDROCHLORIDE
     Indication: METABOLIC SURGERY
     Dosage: OTHER
     Route: 065
     Dates: start: 200402, end: 201407

REACTIONS (2)
  - Breast cancer [Unknown]
  - Lung neoplasm malignant [Unknown]
